FAERS Safety Report 9278428 (Version 1)
Quarter: 2013Q2

REPORT INFORMATION
  Report Type: Spontaneous
  Country: AU (occurrence: AU)
  Receive Date: 20130508
  Receipt Date: 20130508
  Transmission Date: 20140414
  Serious: Yes (Death)
  Sender: FDA-Public Use
  Company Number: AU-009507513-1305AUS002699

PATIENT
  Age: 23 Year
  Sex: Female
  Weight: 75 kg

DRUGS (1)
  1. IMPLANON NXT [Suspect]
     Dosage: UNK, QD
     Route: 059
     Dates: start: 20120719, end: 20121223

REACTIONS (2)
  - Completed suicide [Fatal]
  - Mood altered [Fatal]
